FAERS Safety Report 12741392 (Version 8)
Quarter: 2019Q2

REPORT INFORMATION
  Report Type: Spontaneous
  Country: US (occurrence: US)
  Receive Date: 20160914
  Receipt Date: 20190604
  Transmission Date: 20190711
  Serious: No
  Sender: FDA-Public Use
  Company Number: US-PFIZER INC-2016427691

PATIENT
  Age: 64 Year
  Sex: Female
  Weight: 64.4 kg

DRUGS (5)
  1. LYRICA [Suspect]
     Active Substance: PREGABALIN
     Indication: CERVICAL RADICULOPATHY
     Dosage: 100 MG, 2X/DAY
     Route: 048
  2. LYRICA [Suspect]
     Active Substance: PREGABALIN
     Indication: PAIN
  3. LYRICA [Suspect]
     Active Substance: PREGABALIN
     Indication: BACK INJURY
  4. LYRICA [Suspect]
     Active Substance: PREGABALIN
     Indication: NECK INJURY
  5. LYRICA [Suspect]
     Active Substance: PREGABALIN
     Indication: FIBROMYALGIA
     Dosage: 100 MG, 3X/DAY
     Route: 048

REACTIONS (5)
  - Intentional product use issue [Unknown]
  - Malaise [Not Recovered/Not Resolved]
  - Depression [Unknown]
  - Pain [Unknown]
  - Lung disorder [Unknown]
